FAERS Safety Report 23660509 (Version 3)
Quarter: 2024Q1

REPORT INFORMATION
  Report Type: Report from Study
  Country: US (occurrence: US)
  Receive Date: 20240322
  Receipt Date: 20240325
  Transmission Date: 20240409
  Serious: Yes (Death)
  Sender: FDA-Public Use
  Company Number: US-ABBVIE-5689055

PATIENT
  Age: 69 Year
  Sex: Male

DRUGS (11)
  1. VENCLEXTA [Suspect]
     Active Substance: VENETOCLAX
     Indication: Chronic myelomonocytic leukaemia
     Dosage: TIME INTERVAL: TOTAL: FORM STRENGTH: 100 MILLIGRAM?FREQUENCY TEXT: TOOK ONE TABLET BY MOUTH ON DAY 1
     Route: 048
     Dates: start: 20240305, end: 20240305
  2. VENCLEXTA [Suspect]
     Active Substance: VENETOCLAX
     Indication: Chronic myelomonocytic leukaemia
     Dosage: TIME INTERVAL: TOTAL: FORM STRENGTH: 100 MILLIGRAM?FREQUENCY TEXT: DAY 2
     Route: 048
     Dates: start: 202403, end: 202403
  3. VENCLEXTA [Suspect]
     Active Substance: VENETOCLAX
     Indication: Chronic myelomonocytic leukaemia
     Dosage: FORM STRENGTH: 100 MILLIGRAM
     Route: 048
     Dates: start: 202403, end: 202403
  4. CRESTOR [Concomitant]
     Active Substance: ROSUVASTATIN CALCIUM
     Indication: Product used for unknown indication
     Dosage: FORM STRENGTH: 40 MILLIGRAM
     Route: 048
  5. VITAMINS [Concomitant]
     Active Substance: VITAMINS
     Indication: Product used for unknown indication
     Dosage: TOOK 1 TAB BY MOUTH ONCE DAILY
     Route: 048
  6. ZYLOPRIM [Concomitant]
     Active Substance: ALLOPURINOL
     Indication: Product used for unknown indication
     Dosage: FORM STRENGTH: 300 MILLIGRAM
     Route: 048
  7. ASPIRIN [Concomitant]
     Active Substance: ASPIRIN
     Indication: Product used for unknown indication
     Dosage: FORM STRENGTH: 81 MILLIGRAM?DURATION TEXT: ONE TABLET CHEWED ONCE A DAY
     Route: 048
  8. VITAMIN B12 [Concomitant]
     Active Substance: CYANOCOBALAMIN
     Indication: Product used for unknown indication
     Dosage: FORM STRENGTH: 1000 MICROGRAM?DURATION TEXT: TOOK 2 TABLET (1000 MCG TOTAL)
     Route: 048
  9. FOLVITE [Concomitant]
     Active Substance: FOLIC ACID
     Indication: Product used for unknown indication
     Dosage: FORM STRENGTH: 1 MILLIGRAM?DURATION TEXT: TOOK 1 TAB (1 MG TOTAL)
     Route: 048
  10. TESSALON [Concomitant]
     Active Substance: BENZONATATE
     Indication: Product used for unknown indication
     Dosage: TIME INTERVAL: 0.33333333 DAYS: FORM STRENGTH: 100 MILLIGRAM?DURATION TEXT:  3 TIMES A DAY FOR 14...
     Route: 048
  11. HYDREA [Concomitant]
     Active Substance: HYDROXYUREA
     Indication: Product used for unknown indication
     Dosage: FORM STRENGTH: 1000 MICROGRAM?DURATION TEXT: TOOK 2 CAP (1000 UG TOTAL )
     Route: 048

REACTIONS (2)
  - Death [Fatal]
  - Off label use [Unknown]

NARRATIVE: CASE EVENT DATE: 20240301
